FAERS Safety Report 6990474-4 (Version None)
Quarter: 2010Q3

REPORT INFORMATION
  Report Type: 
  Country: None (occurrence: None)
  Receive Date: 20100916
  Receipt Date: 20100701
  Transmission Date: 20110219
  Serious: Yes (Other)
  Sender: FDA-Public Use
  Company Number: FR-PFIZER INC-2010044371

PATIENT
  Sex: Female
  Weight: 72 kg

DRUGS (2)
  1. LYRICA [Suspect]
     Indication: SCIATICA
     Dosage: 25 MG, 2X/DAY
     Dates: start: 20100401, end: 20100409
  2. ESCITALOPRAM [Concomitant]
     Indication: GENERALISED ANXIETY DISORDER
     Dosage: 10 MG, 1X/DAY
     Route: 048
     Dates: start: 20100401

REACTIONS (5)
  - DRY MOUTH [None]
  - EYE PAIN [None]
  - GENITAL HAEMORRHAGE [None]
  - HYPERHIDROSIS [None]
  - TACHYCARDIA [None]
